FAERS Safety Report 4611608-2 (Version None)
Quarter: 2005Q1

REPORT INFORMATION
  Report Type: 
  Country: None (occurrence: None)
  Receive Date: 20050317
  Receipt Date: 20050309
  Transmission Date: 20050727
  Serious: Yes (Other)
  Sender: FDA-Public Use
  Company Number: IT-GLAXOSMITHKLINE-B0374981A

PATIENT
  Age: 1 Year
  Sex: Male

DRUGS (1)
  1. AUGMENTIN '125' [Suspect]
     Dosage: 80MG PER DAY
     Route: 048
     Dates: start: 20050302, end: 20050303

REACTIONS (2)
  - AGGRESSION [None]
  - AGITATION [None]
